FAERS Safety Report 8990723 (Version 1)
Quarter: 2012Q4

REPORT INFORMATION
  Report Type: 
  Country: US (occurrence: US)
  Receive Date: 20121228
  Receipt Date: 20121228
  Transmission Date: 20130627
  Serious: No
  Sender: FDA-Public Use
  Company Number: US-PFIZER INC-2012331375

PATIENT
  Age: 68 Year
  Sex: Female
  Weight: 54.42 kg

DRUGS (5)
  1. CHANTIX [Suspect]
     Indication: SMOKING CESSATION THERAPY
     Dosage: 0.5 mg, 1x/day
     Route: 048
     Dates: start: 201211, end: 201211
  2. CHANTIX [Suspect]
     Dosage: 0.5 mg, UNK
     Route: 048
     Dates: start: 201211
  3. LEXAPRO [Concomitant]
     Dosage: UNK
  4. SPIRIVA [Concomitant]
     Dosage: UNK
  5. XOPENEX [Concomitant]
     Dosage: UNK

REACTIONS (1)
  - Nausea [Not Recovered/Not Resolved]
